FAERS Safety Report 20202900 (Version 5)
Quarter: 2022Q2

REPORT INFORMATION
  Report Type: Report from Study
  Country: US (occurrence: US)
  Receive Date: 20211218
  Receipt Date: 20220412
  Transmission Date: 20220721
  Serious: Yes (Other)
  Sender: FDA-Public Use
  Company Number: US-ABBVIE-21K-163-4182380-00

PATIENT
  Sex: Female

DRUGS (7)
  1. VENCLEXTA [Suspect]
     Active Substance: VENETOCLAX
     Indication: Immune system disorder
     Dosage: WEEK 1, TAKE 20MG(2X10MG TABS) BY MOUTH EVERY DAY
     Route: 048
  2. VENCLEXTA [Suspect]
     Active Substance: VENETOCLAX
     Indication: Immunodeficiency common variable
     Dosage: WEEK 2, 50MG(1X50MG TAB) DAILY BY MOUTH
     Route: 048
  3. VENCLEXTA [Suspect]
     Active Substance: VENETOCLAX
     Dosage: WEEK 3, 100MG(1X100MG TAB) BY MOUTH DAILY
     Route: 048
  4. VENCLEXTA [Suspect]
     Active Substance: VENETOCLAX
     Dosage: WEEK 4, 200MG(2X100MG TABS) DAILY
     Route: 048
  5. VENCLEXTA [Suspect]
     Active Substance: VENETOCLAX
     Dosage: WEEK 5, TAKE 4 TABLETS DAILY  AND BEYOND WITH A MEAL AND WATER AT THE SAME TIME EACH DAY
     Route: 048
  6. VENCLEXTA [Suspect]
     Active Substance: VENETOCLAX
     Route: 048
  7. VENCLEXTA [Suspect]
     Active Substance: VENETOCLAX
     Route: 048

REACTIONS (7)
  - B-cell lymphoma recurrent [Unknown]
  - Abdominal discomfort [Unknown]
  - Limb injury [Unknown]
  - Flatulence [Unknown]
  - Nodule [Unknown]
  - Off label use [Unknown]
  - Mental impairment [Unknown]
